FAERS Safety Report 4816511-0 (Version None)
Quarter: 2005Q4

REPORT INFORMATION
  Report Type: 
  Country: None (occurrence: None)
  Receive Date: 20051101
  Receipt Date: 20051027
  Transmission Date: 20060501
  Serious: Yes (Death)
  Sender: FDA-Public Use
  Company Number: PHBS2005BR15913

PATIENT
  Sex: Male

DRUGS (1)
  1. DIOCOMB SI [Suspect]
     Indication: HYPERTENSION
     Dosage: 160/20 MG
     Route: 048

REACTIONS (1)
  - INFARCTION [None]
